FAERS Safety Report 24441479 (Version 1)
Quarter: 2024Q4

REPORT INFORMATION
  Report Type: Report from Study
  Country: BE (occurrence: BE)
  Receive Date: 20241016
  Receipt Date: 20241016
  Transmission Date: 20250115
  Serious: Yes (Death, Other)
  Sender: ABBVIE
  Company Number: BE-JNJFOC-20210100692

PATIENT

DRUGS (8)
  1. IBRUTINIB [Suspect]
     Active Substance: IBRUTINIB
     Indication: B-cell lymphoma
     Dosage: DAYS 1 TO 21
     Route: 048
  2. IBRUTINIB [Suspect]
     Active Substance: IBRUTINIB
     Indication: B-cell lymphoma
     Dosage: DAYS 1 TO 21
     Route: 048
  3. IBRUTINIB [Suspect]
     Active Substance: IBRUTINIB
     Indication: B-cell lymphoma
     Dosage: DAYS 1 TO 21
     Route: 048
  4. RITUXIMAB [Suspect]
     Active Substance: RITUXIMAB
     Indication: Chronic lymphocytic leukaemia
     Route: 065
  5. CISPLATIN [Suspect]
     Active Substance: CISPLATIN
     Indication: Mantle cell lymphoma refractory
     Dosage: ON DAY 1
     Route: 065
  6. CYTARABINE [Suspect]
     Active Substance: CYTARABINE
     Indication: Mantle cell lymphoma refractory
     Route: 065
  7. OXALIPLATIN [Suspect]
     Active Substance: OXALIPLATIN
     Indication: Mantle cell lymphoma refractory
     Dosage: ON DAY 1
     Route: 065
  8. DEXAMETHASONE [Suspect]
     Active Substance: DEXAMETHASONE
     Indication: Mantle cell lymphoma refractory
     Dosage: DAYS 1 TO 4
     Route: 065

REACTIONS (20)
  - Multiple organ dysfunction syndrome [Fatal]
  - Rash [Fatal]
  - Hypokalaemia [Fatal]
  - Renal failure [Fatal]
  - Neoplasm malignant [Fatal]
  - Sepsis [Fatal]
  - Cytopenia [Fatal]
  - Abdominal pain upper [Fatal]
  - Diarrhoea [Unknown]
  - Atrial fibrillation [Fatal]
  - Neuropathy peripheral [Fatal]
  - Congenital aplasia [Fatal]
  - Gastric haemorrhage [Fatal]
  - Neutropenia [Fatal]
  - Hypocalcaemia [Unknown]
  - Bronchitis [Unknown]
  - Febrile neutropenia [Fatal]
  - Prostate infection [Fatal]
  - Thrombocytopenia [Fatal]
  - Anaemia [Unknown]
